FAERS Safety Report 6123511-X (Version None)
Quarter: 2009Q1

REPORT INFORMATION
  Report Type: 
  Country: None (occurrence: None)
  Receive Date: 20090318
  Receipt Date: 20090309
  Transmission Date: 20090719
  Serious: Yes (Hospitalization, Other)
  Sender: FDA-Public Use
  Company Number: DE-AMGEN-UK328457

PATIENT
  Sex: Male
  Weight: 80 kg

DRUGS (3)
  1. VECTIBIX [Suspect]
     Indication: COLORECTAL CANCER
     Route: 042
     Dates: start: 20081120, end: 20081218
  2. FORTECORTIN [Concomitant]
     Route: 042
  3. ZANTAC [Concomitant]
     Route: 042

REACTIONS (6)
  - LIMB INJURY [None]
  - PAIN [None]
  - PARONYCHIA [None]
  - SKIN DISCOLOURATION [None]
  - SKIN FISSURES [None]
  - SLEEP DISORDER DUE TO GENERAL MEDICAL CONDITION, INSOMNIA TYPE [None]
